FAERS Safety Report 8684136 (Version 2)
Quarter: 2012Q4

REPORT INFORMATION
  Report Type: 
  Country: DK (occurrence: DK)
  Receive Date: 20120726
  Receipt Date: 20120921
  Transmission Date: 20130627
  Serious: Yes (Hospitalization)
  Sender: FDA-Public Use
  Company Number: DK-ELI_LILLY_AND_COMPANY-DK201207006285

PATIENT
  Age: 49 Year
  Sex: Male
  Weight: 80 kg

DRUGS (2)
  1. EFIENT [Suspect]
     Indication: STENT PLACEMENT
     Dosage: 60 mg, single
     Dates: start: 20100308, end: 20110701
  2. EFIENT [Suspect]
     Dosage: UNK
     Dates: start: 20100309, end: 20110701

REACTIONS (1)
  - Gastric ulcer [Recovering/Resolving]
